FAERS Safety Report 9994042 (Version 1)
Quarter: 2014Q1

REPORT INFORMATION
  Report Type: Spontaneous
  Country: US (occurrence: US)
  Receive Date: 20140310
  Receipt Date: 20140310
  Transmission Date: 20141002
  Serious: No
  Sender: FDA-Public Use
  Company Number: US-AMGEN-USASP2013087483

PATIENT
  Age: 75 Year
  Sex: Male

DRUGS (3)
  1. SENSIPAR [Suspect]
     Indication: PRODUCT USED FOR UNKNOWN INDICATION
     Dosage: 30 MG, UNK
     Route: 065
  2. RENVELA [Concomitant]
     Dosage: UNK UNK, QD
     Route: 065
  3. PHOSLO [Concomitant]
     Dosage: UNK
     Route: 065

REACTIONS (3)
  - Dry mouth [Unknown]
  - Constipation [Unknown]
  - Vomiting [Unknown]
